FAERS Safety Report 8793812 (Version 2)
Quarter: 2012Q4

REPORT INFORMATION
  Report Type: 
  Country: CH (occurrence: CH)
  Receive Date: 20120917
  Receipt Date: 20120925
  Transmission Date: 20130627
  Serious: Yes (Life-Threatening, Hospitalization, Other)
  Sender: FDA-Public Use
  Company Number: PHHY2012CH080161

PATIENT
  Age: 59 Year
  Sex: Female
  Weight: 80 kg

DRUGS (11)
  1. GLIVEC [Suspect]
     Indication: PULMONARY HYPERTENSION
     Dosage: 300 mg, Daily
     Route: 048
     Dates: start: 20111114, end: 201205
  2. ANTICOAGULANTS [Concomitant]
  3. MARCOUMAR [Concomitant]
     Indication: PULMONARY HYPERTENSION
     Dates: start: 2002
  4. VENTAVIS [Concomitant]
     Indication: PULMONARY HYPERTENSION
     Dosage: 300 mg, UNK
     Dates: start: 2004
  5. REVATIO [Concomitant]
     Indication: PULMONARY HYPERTENSION
     Dosage: 150 mg, UNK
     Dates: start: 2004
  6. LITALIR [Concomitant]
     Indication: POLYCYTHAEMIA VERA
     Dosage: 1500 mg, UNK
     Dates: start: 1997
  7. ZYLORIC [Concomitant]
  8. ALDACTONE [Concomitant]
  9. TOREM [Concomitant]
  10. TRACLEER [Concomitant]
  11. PANTOPRAZOLE [Concomitant]

REACTIONS (4)
  - Pericardial haemorrhage [Recovered/Resolved]
  - Dyspnoea [Recovered/Resolved]
  - Chest pain [Recovered/Resolved]
  - Arrhythmia [Recovered/Resolved]
